FAERS Safety Report 22115331 (Version 1)
Quarter: 2023Q1

REPORT INFORMATION
  Report Type: Spontaneous
  Country: RU (occurrence: None)
  Receive Date: 20230320
  Receipt Date: 20230320
  Transmission Date: 20230418
  Serious: Yes (Death, Other)
  Sender: FDA-Public Use
  Company Number: 2023A065232

PATIENT
  Sex: Male
  Weight: 90 kg

DRUGS (1)
  1. IMFINZI [Suspect]
     Active Substance: DURVALUMAB
     Indication: Non-small cell lung cancer
     Dosage: 1500 MG AT FIRST 4 COURSES COMBINED WITH CHEMOTHERAPY EVERY 3 WEEKS, THEN MONOTHERAPY EVERY 4 WEEKS.
     Route: 042

REACTIONS (2)
  - Malignant neoplasm progression [Fatal]
  - Metastases to central nervous system [Unknown]
